FAERS Safety Report 7036425-8 (Version None)
Quarter: 2010Q4

REPORT INFORMATION
  Report Type: 
  Country: None (occurrence: None)
  Receive Date: 20101010
  Receipt Date: 20101007
  Transmission Date: 20110411
  Serious: Yes (Hospitalization, Other)
  Sender: FDA-Public Use
  Company Number: IT-BRISTOL-MYERS SQUIBB COMPANY-15324551

PATIENT
  Age: 79 Year
  Sex: Male

DRUGS (3)
  1. COUMADIN [Suspect]
     Indication: ATRIAL FIBRILLATION
     Dosage: RECEIVED:29JUN10-28SEP10 29SEP10-03OCT10:DOSE REDUCED. SUSPENDED FROM 04OCT10-07OCT RESTARTED
     Dates: start: 20100625
  2. ASPIRIN [Concomitant]
     Indication: MYOCARDIAL ISCHAEMIA
     Dosage: 160 MG POWDER FOR ORAL SLN
     Route: 048
     Dates: start: 20100720, end: 20101004
  3. CORDARONE [Concomitant]
     Indication: ATRIAL FIBRILLATION
     Dosage: TABS
     Route: 048

REACTIONS (2)
  - CARDIAC FAILURE [None]
  - INTERNATIONAL NORMALISED RATIO INCREASED [None]
